FAERS Safety Report 9301202 (Version 1)
Quarter: 2013Q2

REPORT INFORMATION
  Report Type: Spontaneous
  Country: US (occurrence: US)
  Receive Date: 20130521
  Receipt Date: 20130521
  Transmission Date: 20140414
  Serious: Yes (Hospitalization)
  Sender: FDA-Public Use
  Company Number: US-GLAXOSMITHKLINE-A1024166A

PATIENT
  Age: 65 Year
  Sex: Female
  Weight: 48.8 kg

DRUGS (8)
  1. ADVAIR [Suspect]
     Indication: CHRONIC OBSTRUCTIVE PULMONARY DISEASE
     Route: 055
     Dates: start: 20130412
  2. VENTOLIN [Suspect]
     Indication: CHRONIC OBSTRUCTIVE PULMONARY DISEASE
     Dosage: 90MCG AS REQUIRED
     Route: 055
     Dates: start: 20130409
  3. ROFLUMILAST [Suspect]
     Indication: CHRONIC OBSTRUCTIVE PULMONARY DISEASE
     Route: 048
     Dates: start: 20130426, end: 20130429
  4. AMBIEN [Concomitant]
     Dates: start: 201204
  5. SPIRIVA [Concomitant]
     Dates: start: 2005
  6. ACETYLSALICYLIC ACID [Concomitant]
     Dates: start: 200803
  7. OXYGEN [Concomitant]
     Dates: start: 201203
  8. PAXIL [Concomitant]
     Dates: start: 20120524

REACTIONS (2)
  - Pneumonia [Recovering/Resolving]
  - Chronic obstructive pulmonary disease [Recovering/Resolving]
